FAERS Safety Report 13119715 (Version 1)
Quarter: 2017Q1

REPORT INFORMATION
  Report Type: Report from Study
  Country: CZ (occurrence: CZ)
  Receive Date: 20170117
  Receipt Date: 20170117
  Transmission Date: 20170428
  Serious: Yes (Hospitalization)
  Sender: FDA-Public Use
  Company Number: CZ-BAXTER-2017BAX000652

PATIENT
  Age: 47 Year
  Sex: Female

DRUGS (24)
  1. RITUXIMAB [Suspect]
     Active Substance: RITUXIMAB
     Indication: B-CELL LYMPHOMA
     Dosage: 675 MG, AS PER PROTOCOL, MOST RECENT DOSE PRIOR TO THE EVENT ONSET
     Route: 042
     Dates: start: 20161107
  2. GRANISETRONUM [Concomitant]
     Indication: PROPHYLAXIS OF NAUSEA AND VOMITING
     Route: 065
     Dates: start: 20161107
  3. VENETOCLAX [Suspect]
     Active Substance: VENETOCLAX
     Dosage: MOST RECENT DOSE PRIOR TO THE EVENT ONSET
     Route: 048
     Dates: start: 20161116
  4. OMEPRAZOLUM [Concomitant]
     Indication: PROPHYLAXIS AGAINST GASTROINTESTINAL ULCER
     Route: 065
     Dates: start: 20161106
  5. TRIMECAINE HYDROCHLORIDE [Concomitant]
     Indication: MUCOSAL INFLAMMATION
     Route: 065
     Dates: start: 20161114
  6. PARACETAMOLUM [Concomitant]
     Active Substance: ACETAMINOPHEN
     Indication: PREMEDICATION
     Route: 065
     Dates: start: 20161107, end: 20161107
  7. ENDOXAN 1G [Suspect]
     Active Substance: CYCLOPHOSPHAMIDE
     Indication: B-CELL LYMPHOMA
     Dosage: 1350 MG, AS PER PROTOCOL, MOST RECENT DOSE PRIOR TO THE EVENT ONSET
     Route: 042
     Dates: start: 20161107
  8. DOXORUBICIN [Suspect]
     Active Substance: DOXORUBICIN
     Indication: B-CELL LYMPHOMA
     Dosage: 90 MG, PER PROTOCOL, MOST RECENT DOSE PRIOR TO THE EVENT ONSET
     Route: 042
     Dates: start: 20161107
  9. NADROPARINUM CALCICUM [Concomitant]
     Indication: THROMBOSIS PROPHYLAXIS
     Route: 065
     Dates: start: 20161031, end: 20161110
  10. ALLOPURINOLUM [Concomitant]
     Indication: PROPHYLAXIS
     Route: 065
     Dates: start: 20161106, end: 20161110
  11. BENZYDAMINE HYDROCHLORIDE [Concomitant]
     Active Substance: BENZYDAMINE HYDROCHLORIDE
     Indication: MUCOSAL INFLAMMATION
     Route: 065
     Dates: start: 20161114
  12. HYDROCORTISONE. [Concomitant]
     Active Substance: HYDROCORTISONE
     Indication: PREMEDICATION
     Route: 065
     Dates: start: 20161107, end: 20161107
  13. VINCRISTINE [Suspect]
     Active Substance: VINCRISTINE
     Indication: B-CELL LYMPHOMA
     Dosage: (WITH CAP OF 2 MG PER PROTOCOL), MOST RECENT DOSE PRIOR TO THE EVENT ONSET
     Route: 040
     Dates: start: 20161107
  14. NADROPARINUM CALCICUM [Concomitant]
     Route: 065
     Dates: start: 20161117, end: 20161121
  15. HERPESIN [Concomitant]
     Indication: INFECTION PROPHYLAXIS
     Route: 065
     Dates: start: 20161108
  16. FILGRASTIMUM [Concomitant]
     Indication: PROPHYLAXIS
     Route: 065
     Dates: start: 20161113, end: 20161113
  17. IRRADIATED PACKED RED BLOOD CELLS [Concomitant]
     Indication: ANAEMIA
     Dosage: DOSE: 2 (UNITS NOT REPORTED)
     Route: 065
     Dates: start: 20161111, end: 20161111
  18. 0,9% SODIUM CHLORIDE INTRAVENOUS INFUSION BP BAXTER [Suspect]
     Active Substance: SODIUM CHLORIDE
     Indication: PROPHYLAXIS
     Route: 065
     Dates: start: 20161107, end: 20161110
  19. 0,9% SODIUM CHLORIDE INTRAVENOUS INFUSION BP BAXTER [Suspect]
     Active Substance: SODIUM CHLORIDE
     Indication: PROPHYLAXIS
     Route: 065
     Dates: start: 20161117, end: 20161120
  20. PREDNISONE. [Suspect]
     Active Substance: PREDNISONE
     Indication: B-CELL LYMPHOMA
     Route: 065
     Dates: start: 20161101, end: 20161106
  21. PREDNISONE. [Suspect]
     Active Substance: PREDNISONE
     Indication: PRODUCT USED FOR UNKNOWN INDICATION
     Dosage: ON DAYS 1-5 OF 21 DAYS CYCLE, MOST RECENT DOSE PRIOR TO EVENT ON 11NOV2016
     Route: 048
     Dates: start: 20161107, end: 20161111
  22. VENETOCLAX [Suspect]
     Active Substance: VENETOCLAX
     Indication: B-CELL LYMPHOMA
     Route: 048
     Dates: start: 20161110
  23. BISULEPINIUM CHLORATUM [Concomitant]
     Indication: PREMEDICATION
     Route: 065
     Dates: start: 20161107, end: 20161107
  24. SULFAMETHOXAZOLE/TRIMETHOPRIM [Concomitant]
     Active Substance: SULFAMETHOXAZOLE\TRIMETHOPRIM
     Indication: INFECTION PROPHYLAXIS
     Route: 065
     Dates: start: 20161108

REACTIONS (1)
  - Febrile neutropenia [Recovered/Resolved]

NARRATIVE: CASE EVENT DATE: 20161117
